FAERS Safety Report 9772313 (Version 4)
Quarter: 2019Q4

REPORT INFORMATION
  Report Type: Spontaneous
  Country: JP (occurrence: JP)
  Receive Date: 20131219
  Receipt Date: 20191211
  Transmission Date: 20200122
  Serious: Yes (Death, Hospitalization, Other)
  Sender: FDA-Public Use
  Company Number: JP-BAYER-2013-152031

PATIENT
  Age: 42 Year
  Sex: Female
  Weight: 54 kg

DRUGS (4)
  1. YAZ [Suspect]
     Active Substance: DROSPIRENONE\ETHINYL ESTRADIOL
     Indication: DYSMENORRHOEA
     Dosage: 1 DF, QD
     Route: 048
     Dates: start: 20121206, end: 20131209
  2. VESICARE [Concomitant]
     Active Substance: SOLIFENACIN SUCCINATE
     Indication: POLLAKIURIA
     Dosage: 5 MG, QD
     Route: 048
     Dates: start: 20130701, end: 20131005
  3. VOLTAREN [Concomitant]
     Active Substance: DICLOFENAC SODIUM
     Dosage: 37.5 MG, BID
     Route: 048
     Dates: start: 20121129
  4. SELBEX [Concomitant]
     Active Substance: TEPRENONE
     Indication: PROPHYLAXIS
     Dosage: 50 MG, BID
     Route: 048
     Dates: start: 20130411, end: 20130710

REACTIONS (20)
  - Pulmonary embolism [Fatal]
  - Renal failure [None]
  - Brain death [None]
  - Cerebral ischaemia [None]
  - Mydriasis [None]
  - Blood pressure increased [None]
  - Urine output decreased [None]
  - Pleural effusion [None]
  - Haemorrhage [None]
  - Dyspnoea [Fatal]
  - Pain in extremity [None]
  - Depressed level of consciousness [Fatal]
  - Deep vein thrombosis [None]
  - Muscle spasms [None]
  - Tachypnoea [Fatal]
  - Peripheral swelling [None]
  - Shock [Fatal]
  - Intracranial pressure increased [None]
  - Hypoaesthesia [None]
  - Cardio-respiratory arrest [Fatal]

NARRATIVE: CASE EVENT DATE: 20130701
